FAERS Safety Report 11437578 (Version 1)
Quarter: 2015Q3

REPORT INFORMATION
  Report Type: Spontaneous
  Country: US (occurrence: US)
  Receive Date: 20150821
  Receipt Date: 20150821
  Transmission Date: 20151125
  Serious: No
  Sender: FDA-Public Use
  Company Number: US-ELI_LILLY_AND_COMPANY-US200705004693

PATIENT
  Age: 53 Year
  Sex: Male

DRUGS (6)
  1. OXYBUTON [Concomitant]
  2. OXYCODONE [Concomitant]
     Active Substance: OXYCODONE
  3. CYMBALTA [Suspect]
     Active Substance: DULOXETINE HYDROCHLORIDE
     Indication: DEPRESSION
     Dosage: 30 MG, DAILY (1/D)
     Route: 048
     Dates: start: 200705, end: 200705
  4. MORPHINI HYDROCHLORIDUM STREULI [Concomitant]
     Route: 037
  5. DIAZEPAM. [Concomitant]
     Active Substance: DIAZEPAM
  6. ROXICODONE [Concomitant]
     Active Substance: OXYCODONE HYDROCHLORIDE

REACTIONS (1)
  - Muscle rigidity [Recovered/Resolved]

NARRATIVE: CASE EVENT DATE: 200705
